FAERS Safety Report 16704585 (Version 1)
Quarter: 2019Q3

REPORT INFORMATION
  Report Type: Spontaneous
  Country: US (occurrence: US)
  Receive Date: 20190814
  Receipt Date: 20190814
  Transmission Date: 20191004
  Serious: Yes (Hospitalization, Other)
  Sender: FDA-Public Use
  Company Number: US-BIOMARINAP-US-2015-107128

PATIENT
  Age: 12 Year
  Sex: Male

DRUGS (2)
  1. ALDURAZYME [Suspect]
     Active Substance: LARONIDASE
     Indication: MUCOPOLYSACCHARIDOSIS I
     Dosage: 17.4 MG, QW
     Route: 041
     Dates: start: 20051116
  2. ALDURAZYME [Suspect]
     Active Substance: LARONIDASE
     Dosage: 17.4 MG, QW
     Route: 041
     Dates: start: 201008

REACTIONS (3)
  - Cough [Not Recovered/Not Resolved]
  - Product use issue [Unknown]
  - Pneumonia [Not Recovered/Not Resolved]

NARRATIVE: CASE EVENT DATE: 201507
